FAERS Safety Report 5915916-4 (Version None)
Quarter: 2008Q4

REPORT INFORMATION
  Report Type: 
  Country: None (occurrence: None)
  Receive Date: 20081010
  Receipt Date: 20081002
  Transmission Date: 20090506
  Serious: Yes (Other)
  Sender: FDA-Public Use
  Company Number: US-PFIZER INC-2008083760

PATIENT
  Sex: Female

DRUGS (8)
  1. LYRICA [Suspect]
     Indication: NEUROPATHY PERIPHERAL
     Dates: start: 20080901
  2. LYRICA [Suspect]
     Indication: PARTIAL SEIZURES
  3. SYNTHROID [Concomitant]
  4. ACETYLSALICYLIC ACID SRT [Concomitant]
  5. VITAMIN B-12 [Concomitant]
  6. ADDERALL 10 [Concomitant]
  7. CLONAZEPAM [Concomitant]
  8. INSULIN [Concomitant]

REACTIONS (4)
  - BLOOD GLUCOSE INCREASED [None]
  - INCREASED APPETITE [None]
  - SOMNOLENCE [None]
  - WEIGHT INCREASED [None]
